FAERS Safety Report 11420112 (Version 1)
Quarter: 2015Q3

REPORT INFORMATION
  Report Type: Spontaneous
  Country: JP (occurrence: JP)
  Receive Date: 20150826
  Receipt Date: 20150826
  Transmission Date: 20151125
  Serious: Yes (Hospitalization)
  Sender: FDA-Public Use
  Company Number: JP-GLAXOSMITHKLINE-JP2014JPN032820

PATIENT
  Sex: Female

DRUGS (3)
  1. LAMICTAL [Suspect]
     Active Substance: LAMOTRIGINE
     Indication: BIPOLAR DISORDER
     Dosage: UNK
     Route: 048
  2. ZYPREXA [Concomitant]
     Active Substance: OLANZAPINE
     Dosage: UNK
  3. HALCION [Concomitant]
     Active Substance: TRIAZOLAM
     Dosage: UNK

REACTIONS (1)
  - Renal disorder [Recovered/Resolved]
